FAERS Safety Report 5115230-3 (Version None)
Quarter: 2006Q3

REPORT INFORMATION
  Report Type: 
  Country: None (occurrence: None)
  Receive Date: 20060922
  Receipt Date: 20060830
  Transmission Date: 20061208
  Serious: Yes (Other)
  Sender: FDA-Public Use
  Company Number: 2006108519

PATIENT
  Age: 38 Year
  Sex: Female
  Weight: 90.7194 kg

DRUGS (2)
  1. BEXTRA [Suspect]
     Indication: SYSTEMIC LUPUS ERYTHEMATOSUS
     Dosage: (UNK, BID: DAILY)
     Dates: end: 20040101
  2. MOTRIN [Concomitant]

REACTIONS (1)
  - HAEMANGIOMA OF LIVER [None]
